FAERS Safety Report 21567676 (Version 4)
Quarter: 2025Q2

REPORT INFORMATION
  Report Type: Spontaneous
  Country: BR (occurrence: BR)
  Receive Date: 20221108
  Receipt Date: 20250530
  Transmission Date: 20250716
  Serious: Yes (Hospitalization, Other)
  Sender: NOVARTIS
  Company Number: BR-002147023-NVSC2022BR227826

PATIENT
  Sex: Female
  Weight: 54 kg

DRUGS (9)
  1. GLIVEC [Suspect]
     Active Substance: IMATINIB MESYLATE
     Indication: Chronic myeloid leukaemia
     Dosage: 1 DOSAGE FORM, QD
     Route: 048
     Dates: start: 202208, end: 202209
  2. GLIVEC [Suspect]
     Active Substance: IMATINIB MESYLATE
     Dosage: 400 MG, QD (1 TABLET PER DAY)
     Route: 065
     Dates: start: 20220923
  3. GLIVEC [Suspect]
     Active Substance: IMATINIB MESYLATE
     Route: 048
     Dates: start: 202209
  4. GLIVEC [Suspect]
     Active Substance: IMATINIB MESYLATE
     Dosage: 3 DOSAGE FORM, QD (100 MG WITH 60 TABLETS)
     Route: 048
  5. GLIVEC [Suspect]
     Active Substance: IMATINIB MESYLATE
     Dosage: 4 DOSAGE FORM, QD
     Route: 065
  6. GLIVEC [Suspect]
     Active Substance: IMATINIB MESYLATE
     Dosage: 4 DOSAGE FORM, QD (4 TABLET PER DAY)
     Route: 065
     Dates: start: 20220923
  7. XARELTO [Concomitant]
     Active Substance: RIVAROXABAN
     Indication: Thrombosis prophylaxis
     Dosage: 1 DOSAGE FORM, QD
     Route: 048
     Dates: start: 202208
  8. XARELTO [Concomitant]
     Active Substance: RIVAROXABAN
     Dosage: 2 DOSAGE FORM, QD
     Route: 048
  9. Prolive [Concomitant]
     Indication: Diarrhoea
     Route: 065

REACTIONS (11)
  - H1N1 influenza [Recovered/Resolved]
  - Gastrointestinal bacterial infection [Recovering/Resolving]
  - White blood cell count decreased [Recovering/Resolving]
  - Heavy menstrual bleeding [Recovering/Resolving]
  - Arthralgia [Recovering/Resolving]
  - Abdominal pain upper [Unknown]
  - Decreased immune responsiveness [Unknown]
  - Diarrhoea [Unknown]
  - Vaginal haemorrhage [Recovered/Resolved]
  - Pruritus [Recovered/Resolved]
  - Therapeutic response delayed [Unknown]

NARRATIVE: CASE EVENT DATE: 20220101
